FAERS Safety Report 25504601 (Version 1)
Quarter: 2025Q3

REPORT INFORMATION
  Report Type: Report from Study
  Country: CA (occurrence: CA)
  Receive Date: 20250702
  Receipt Date: 20250702
  Transmission Date: 20251020
  Serious: No
  Sender: BLUEPRINT MEDICINES
  Company Number: CA-Blueprint Medicines Corporation-2025-AER-01399

PATIENT
  Sex: Female

DRUGS (1)
  1. AVAPRITINIB [Suspect]
     Active Substance: AVAPRITINIB
     Indication: Product used for unknown indication
     Route: 065

REACTIONS (4)
  - Cognitive disorder [Unknown]
  - Hypervigilance [Unknown]
  - Agitation [Unknown]
  - Energy increased [Unknown]
